FAERS Safety Report 7407841-7 (Version None)
Quarter: 2011Q2

REPORT INFORMATION
  Report Type: 
  Country: None (occurrence: None)
  Receive Date: 20110412
  Receipt Date: 20110404
  Transmission Date: 20111010
  Serious: Yes (Hospitalization)
  Sender: FDA-Public Use
  Company Number: PT-AMGEN-PRTSP2011017877

PATIENT
  Age: 43 Year
  Sex: Female
  Weight: 70 kg

DRUGS (4)
  1. NEULASTA [Suspect]
     Indication: FEBRILE NEUTROPENIA
     Dosage: 6 MG, UNK
     Route: 058
     Dates: start: 20110316, end: 20110316
  2. DOXORUBICINE [Concomitant]
     Dosage: 75 MG/M2, UNK
     Dates: start: 20110315, end: 20110315
  3. DOCETAXEL [Concomitant]
     Dosage: 50 MG/M2, UNK
     Dates: start: 20110315, end: 20110315
  4. CYCLOPHOSPHAMIDE [Concomitant]
     Dosage: 200 MG/M2, UNK
     Dates: start: 20110315, end: 20110315

REACTIONS (1)
  - DRUG INEFFECTIVE [None]
